FAERS Safety Report 19877019 (Version 2)
Quarter: 2021Q3

REPORT INFORMATION
  Report Type: Report from Study
  Country: DE (occurrence: DE)
  Receive Date: 20210923
  Receipt Date: 20210930
  Transmission Date: 20211014
  Serious: Yes (Death)
  Sender: FDA-Public Use
  Company Number: DE-BRISTOL-MYERS SQUIBB COMPANY-BMS-2021-095925

PATIENT
  Age: 62 Year
  Sex: Male

DRUGS (21)
  1. NIVOLUMAB [Suspect]
     Active Substance: NIVOLUMAB
     Dosage: 240 MILLIGRAM, Q2WK
     Route: 042
     Dates: end: 20210908
  2. ASPIRIN. [Concomitant]
     Active Substance: ASPIRIN
     Indication: CEREBROVASCULAR DISORDER
  3. RANOLAZINE. [Concomitant]
     Active Substance: RANOLAZINE
     Indication: CEREBROVASCULAR DISORDER
  4. ASPIRIN. [Concomitant]
     Active Substance: ASPIRIN
     Indication: CARDIOVASCULAR DISORDER
     Dosage: 100 MILLIGRAM
     Route: 065
  5. PREGABALIN. [Concomitant]
     Active Substance: PREGABALIN
     Indication: NEOPLASM
     Dosage: 100 MILLIGRAM
     Route: 065
     Dates: start: 20210705
  6. CANDESARTAN. [Concomitant]
     Active Substance: CANDESARTAN
     Indication: CARDIOVASCULAR DISORDER
     Dosage: 16 MILLIGRAM
     Route: 065
  7. IVABRADIN [Concomitant]
     Active Substance: IVABRADINE
     Indication: CARDIOVASCULAR DISORDER
     Dosage: 10 MILLIGRAM
     Route: 065
  8. NOVALGIN (METAMIZOLE SODIUM) [Concomitant]
     Active Substance: METAMIZOLE SODIUM
     Indication: NEOPLASM
     Dosage: AS NEEDED
     Route: 065
  9. NIVOLUMAB [Suspect]
     Active Substance: NIVOLUMAB
     Indication: RENAL CELL CARCINOMA
     Dosage: 3 MILLIGRAM/KILOGRAM, Q3WK
     Route: 042
     Dates: start: 20201216, end: 20210811
  10. IPILIMUMAB [Suspect]
     Active Substance: IPILIMUMAB
     Indication: RENAL CELL CARCINOMA
     Dosage: 1 MILLIGRAM/KILOGRAM, Q3WK
     Route: 042
     Dates: start: 20201216, end: 20210811
  11. HYDROCHLOROTHIAZIDE. [Concomitant]
     Active Substance: HYDROCHLOROTHIAZIDE
     Indication: CEREBROVASCULAR DISORDER
  12. SIMVASTATIN. [Concomitant]
     Active Substance: SIMVASTATIN
     Indication: METABOLIC DISORDER
     Dosage: 40 MILLIGRAM
     Route: 065
  13. BUDESONID [Concomitant]
     Active Substance: BUDESONIDE
     Indication: LUNG DISORDER
     Dosage: 0.8 MILLIGRAM
     Route: 065
  14. RANOLAZINE. [Concomitant]
     Active Substance: RANOLAZINE
     Indication: CARDIOVASCULAR DISORDER
     Dosage: 1000 MILLIGRAM
     Route: 065
  15. FENTANYL. [Concomitant]
     Active Substance: FENTANYL
     Indication: NEOPLASM
     Dosage: 50 MICROGRAM/H
     Route: 065
     Dates: start: 20210729
  16. MOVICOL [Concomitant]
     Active Substance: POLYETHYLENE GLYCOL 3350\POTASSIUM CHLORIDE\SODIUM BICARBONATE\SODIUM CHLORIDE
     Indication: NEOPLASM
     Dosage: 1 SACHET
     Route: 065
     Dates: start: 20210705
  17. LACTULOSE. [Concomitant]
     Active Substance: LACTULOSE
     Indication: NEOPLASM
     Dosage: AS NEEDED
     Route: 065
     Dates: start: 20210705
  18. CANDESARTAN. [Concomitant]
     Active Substance: CANDESARTAN
     Indication: CEREBROVASCULAR DISORDER
  19. HYDROCHLOROTHIAZIDE. [Concomitant]
     Active Substance: HYDROCHLOROTHIAZIDE
     Indication: CARDIOVASCULAR DISORDER
     Dosage: 25 MILLIGRAM
     Route: 065
  20. IVABRADIN [Concomitant]
     Active Substance: IVABRADINE
     Indication: CEREBROVASCULAR DISORDER
  21. SALBUTAMOL [Concomitant]
     Active Substance: ALBUTEROL
     Indication: LUNG DISORDER
     Dosage: AS NEEDED
     Route: 065

REACTIONS (1)
  - General physical health deterioration [Fatal]

NARRATIVE: CASE EVENT DATE: 202109
